FAERS Safety Report 5832644-4 (Version None)
Quarter: 2008Q3

REPORT INFORMATION
  Report Type: 
  Country: None (occurrence: None)
  Receive Date: 20080730
  Receipt Date: 20080714
  Transmission Date: 20090109
  Serious: Yes (Life-Threatening, Hospitalization, Disabling)
  Sender: FDA-Public Use
  Company Number: 8032573

PATIENT
  Age: 25 Year
  Sex: Female
  Weight: 57 kg

DRUGS (2)
  1. KEPPRA [Suspect]
     Indication: EPILEPSY
     Dosage: 500 MG /D PO
     Route: 048
     Dates: start: 20051205, end: 20051201
  2. LAMOTRIGINE [Concomitant]

REACTIONS (1)
  - MYASTHENIA GRAVIS [None]
